FAERS Safety Report 8716212 (Version 4)
Quarter: 2013Q1

REPORT INFORMATION
  Report Type: Report from Study
  Country: JP (occurrence: JP)
  Receive Date: 20120809
  Receipt Date: 20130212
  Transmission Date: 20140127
  Serious: Yes (Hospitalization, Other)
  Sender: FDA-Public Use
  Company Number: JP-009507513-1208JPN000369

PATIENT
  Age: 80 Year
  Sex: Female
  Weight: 45 kg

DRUGS (20)
  1. PEGINTRON [Suspect]
     Indication: CHRONIC HEPATITIS C
     Dosage: 1.5 MICROGRAM PER KILOGRAM, QW
     Route: 058
     Dates: start: 20120427, end: 20121003
  2. REBETOL [Suspect]
     Indication: CHRONIC HEPATITIS C
     Dosage: 400 MG, QD
     Route: 048
     Dates: start: 20120427, end: 20120524
  3. REBETOL [Suspect]
     Dosage: 200 MG, QD
     Route: 048
     Dates: start: 20120525, end: 20120801
  4. REBETOL [Suspect]
     Dosage: 400 MG, QD
     Route: 048
     Dates: start: 20120802, end: 20121010
  5. TELAVIC [Suspect]
     Indication: CHRONIC HEPATITIS C
     Dosage: 1500 MG, QD
     Route: 048
     Dates: start: 20120427, end: 20120517
  6. UBIRON [Concomitant]
     Indication: CHRONIC HEPATITIS C
     Dosage: 300 MG, QD
     Route: 048
  7. ISOLEUCINE (+) LEUCINE (+) VALINE [Concomitant]
     Indication: CHRONIC HEPATITIS C
     Dosage: 12.45 G, QD
     Route: 048
  8. LANSOPRAZOLE [Concomitant]
     Indication: GASTRITIS
     Dosage: 30 MG, QD
     Route: 048
  9. ONEALFA [Concomitant]
     Indication: OSTEOPOROSIS
     Dosage: 1 MICROGRAM, QD
     Route: 048
  10. DIOVAN [Concomitant]
     Indication: HYPERTENSION
     Dosage: 160 MG/DAY, PRN
     Route: 048
  11. DIOVAN [Concomitant]
     Dosage: 160 MG, QD
     Route: 048
  12. MIROBECT [Concomitant]
     Indication: ARRHYTHMIA
     Dosage: 50 MG, QD
     Route: 048
  13. AMLODIPINE BESYLATE [Concomitant]
     Indication: HYPERTENSION
     Dosage: 10 MG, QD
     Route: 048
  14. BERIZYM (ASPERGILLUS ORYZAE EXTRACT (+) CELLULASE (+) LIPASE (+) PANCR [Concomitant]
     Indication: GASTRITIS
     Dosage: 3 G, QD
     Route: 048
  15. ASPARA CA [Concomitant]
     Indication: OSTEOPOROSIS
     Dosage: 600 MG, QD
     Route: 048
  16. ANTEBATE [Concomitant]
     Indication: DERMATITIS
     Dosage: UNK UNK, PRN
     Route: 061
  17. LIDOMEX [Concomitant]
     Indication: DERMATITIS
     Dosage: UNK UNK, PRN
     Route: 061
  18. DEXALTIN [Concomitant]
     Indication: STOMATITIS
     Dosage: UNK, PRN
     Route: 061
  19. LOXONIN [Concomitant]
     Indication: PROPHYLAXIS
     Dosage: 60 MG/DAY, PRN
     Route: 048
     Dates: start: 20120427
  20. MUCOSTA [Concomitant]
     Indication: PROPHYLAXIS
     Dosage: 100 MG/DAY, PRN
     Route: 048
     Dates: start: 20120427

REACTIONS (3)
  - Anaemia [Recovering/Resolving]
  - Renal impairment [Recovering/Resolving]
  - Pancreatitis [Recovering/Resolving]
